FAERS Safety Report 6189851-3 (Version None)
Quarter: 2009Q2

REPORT INFORMATION
  Report Type: 
  Country: None (occurrence: None)
  Receive Date: 20090514
  Receipt Date: 20090507
  Transmission Date: 20091009
  Serious: Yes (Other)
  Sender: FDA-Public Use
  Company Number: US-ASTRAZENECA-2009AC01326

PATIENT
  Age: 36 Year
  Sex: Female

DRUGS (10)
  1. PROPOFOL [Suspect]
     Indication: SEDATION
     Dosage: LATER THE DOSAGE WAS INCREASED
     Route: 042
  2. MIDAZOLAM HCL [Concomitant]
     Indication: SEDATION
     Dosage: LATER THE PREVIOUS DOSAGE WAS INCREASED
     Route: 042
  3. VANCOMYCIN [Concomitant]
     Indication: EVIDENCE BASED TREATMENT
  4. MOXIFLOXACIN HCL [Concomitant]
     Indication: EVIDENCE BASED TREATMENT
  5. PIPERACILLIN [Concomitant]
     Indication: EVIDENCE BASED TREATMENT
  6. TRIMETHOPRIM [Concomitant]
     Indication: EVIDENCE BASED TREATMENT
  7. SULFAMETHOXAZOLE AND TRIMETHOPRIM [Concomitant]
     Indication: EVIDENCE BASED TREATMENT
  8. MICAFUNGIN [Concomitant]
     Indication: EVIDENCE BASED TREATMENT
  9. CORTICOSTEROIDS [Concomitant]
  10. VASOPRESSORS [Concomitant]

REACTIONS (1)
  - PROPOFOL INFUSION SYNDROME [None]
